FAERS Safety Report 5855833-1 (Version None)
Quarter: 2008Q3

REPORT INFORMATION
  Report Type: 
  Country: None (occurrence: None)
  Receive Date: 20080821
  Receipt Date: 20080821
  Transmission Date: 20090109
  Serious: Yes (Hospitalization)
  Sender: FDA-Public Use
  Company Number: None

PATIENT
  Age: 16 Year
  Sex: Male
  Weight: 61.2356 kg

DRUGS (1)
  1. KETOCONAZOLE [Suspect]
     Indication: TINEA INFECTION
     Dosage: ONE PILL ONCE A DAY PO
     Route: 048
     Dates: start: 20080619, end: 20080625

REACTIONS (9)
  - FATIGUE [None]
  - JAUNDICE [None]
  - LIVER FUNCTION TEST ABNORMAL [None]
  - MALAISE [None]
  - NAUSEA [None]
  - PAIN IN EXTREMITY [None]
  - PYREXIA [None]
  - STAPHYLOCOCCAL INFECTION [None]
  - VOMITING [None]
